FAERS Safety Report 7357422-9 (Version None)
Quarter: 2011Q1

REPORT INFORMATION
  Report Type: 
  Country: None (occurrence: None)
  Receive Date: 20110317
  Receipt Date: 20100722
  Transmission Date: 20110831
  Serious: Yes (Hospitalization)
  Sender: FDA-Public Use
  Company Number: US-BAYER-201020487NA

PATIENT
  Sex: Female
  Weight: 86.364 kg

DRUGS (3)
  1. YASMIN [Suspect]
     Indication: MENSTRUATION IRREGULAR
     Route: 048
     Dates: start: 20070301, end: 20070901
  2. NSAID'S [Concomitant]
     Dosage: EVERY ONCE IN A WHILE
     Route: 065
     Dates: start: 20020101
  3. YAZ [Suspect]
     Indication: MENSTRUATION IRREGULAR
     Dosage: UNK UNK, UNK
     Route: 048
     Dates: start: 20080218

REACTIONS (9)
  - BILE DUCT STONE [None]
  - BILE DUCT OBSTRUCTION [None]
  - ABDOMINAL PAIN [None]
  - VOMITING [None]
  - PANCREATITIS [None]
  - CHOLECYSTITIS CHRONIC [None]
  - NAUSEA [None]
  - CHOLELITHIASIS [None]
  - ABDOMINAL PAIN UPPER [None]
